FAERS Safety Report 7985296-1 (Version None)
Quarter: 2011Q4

REPORT INFORMATION
  Report Type: 
  Country: None (occurrence: None)
  Receive Date: 20111123
  Receipt Date: 20110816
  Transmission Date: 20120403
  Serious: No
  Sender: FDA-Public Use
  Company Number: 333689

PATIENT
  Age: 39 Year
  Sex: Male

DRUGS (1)
  1. VICTOZA [Suspect]
     Indication: TYPE 1 DIABETES MELLITUS
     Dosage: 1.8 MG, SUBCUTANEOUS
     Route: 058
     Dates: start: 20110701

REACTIONS (3)
  - DYSPEPSIA [None]
  - VOMITING [None]
  - HYPOGLYCAEMIA [None]
